FAERS Safety Report 20344586 (Version 1)
Quarter: 2022Q1

REPORT INFORMATION
  Report Type: Spontaneous
  Country: US (occurrence: US)
  Receive Date: 20220118
  Receipt Date: 20220118
  Transmission Date: 20220424
  Serious: No
  Sender: FDA-Public Use
  Company Number: US-ALKEM LABORATORIES LIMITED-US-ALKEM-2021-04940

PATIENT
  Sex: Male

DRUGS (2)
  1. METHADONE HYDROCHLORIDE [Suspect]
     Active Substance: METHADONE HYDROCHLORIDE
     Indication: Intervertebral disc degeneration
     Dosage: 40 MILLIGRAM, QD (TWICE IN THE MORNING TWICE IN THE AFTERNOON)
     Route: 048
     Dates: start: 20210809
  2. METHADONE HYDROCHLORIDE [Suspect]
     Active Substance: METHADONE HYDROCHLORIDE
     Indication: Facet joint syndrome

REACTIONS (1)
  - Drug ineffective for unapproved indication [Unknown]
